FAERS Safety Report 19724507 (Version 1)
Quarter: 2021Q3

REPORT INFORMATION
  Report Type: Report from Study
  Country: ZA (occurrence: ZA)
  Receive Date: 20210819
  Receipt Date: 20210819
  Transmission Date: 20211014
  Serious: Yes (Death)
  Sender: FDA-Public Use
  Company Number: ZA-ASTRAZENECA-2021A686807

PATIENT
  Sex: Male

DRUGS (3)
  1. FORXIGA [Suspect]
     Active Substance: DAPAGLIFLOZIN
     Dosage: 10.0MG UNKNOWN
     Route: 048
  2. BILOCOR [Concomitant]
     Active Substance: BISOPROLOL FUMARATE
     Route: 065
  3. MONICOR SR [Concomitant]
     Active Substance: ISOSORBIDE MONONITRATE
     Dosage: 60.0MG UNKNOWN
     Route: 065

REACTIONS (1)
  - Death [Fatal]
